FAERS Safety Report 26195765 (Version 1)
Quarter: 2025Q4

REPORT INFORMATION
  Report Type: Report from Study
  Country: US (occurrence: US)
  Receive Date: 20251224
  Receipt Date: 20251224
  Transmission Date: 20260117
  Serious: Yes (unspecified)
  Sender: CALIFORNIA DEPARTMENT OF PUBLIC HEALTH
  Company Number: US-California Department of Public Health-2191224

PATIENT
  Age: 1 Month
  Sex: Female
  Weight: 3.58 kg

DRUGS (2)
  1. BABYBIG [Suspect]
     Active Substance: HUMAN BOTULINUM NEUROTOXIN A/B IMMUNE GLOBULIN
     Indication: Botulism
     Dates: start: 20161115
  2. BAT [Concomitant]
     Active Substance: EQUINE BOTULINUM NEUROTOXIN A/B/C/D/E/F/G IMMUNE FAB2

REACTIONS (5)
  - Pneumatosis intestinalis [Recovered/Resolved]
  - Pupillary disorder [Unknown]
  - Euthyroid sick syndrome [Recovered/Resolved]
  - Hydronephrosis [Recovered/Resolved]
  - Anaemia [Recovered/Resolved]

NARRATIVE: CASE EVENT DATE: 20161101
